FAERS Safety Report 4710945-0 (Version None)
Quarter: 2005Q2

REPORT INFORMATION
  Report Type: 
  Country: None (occurrence: None)
  Receive Date: 20050629
  Receipt Date: 20050315
  Transmission Date: 20051028
  Serious: No
  Sender: FDA-Public Use
  Company Number: 04P-163-0280957-00

PATIENT
  Age: 67 Year
  Sex: Female
  Weight: 56.246 kg

DRUGS (8)
  1. HUMIRA [Suspect]
     Indication: RHEUMATOID ARTHRITIS
     Dosage: 40 MG, 1 IN 2 WK, SUBCUTANEOUS
     Route: 058
     Dates: start: 20040727
  2. NAPROXEN SODIUM [Suspect]
     Dosage: 440 MG, 1 IN 1 D
     Dates: start: 20040501
  3. IBUPROFEN [Suspect]
     Dosage: 800 MG, 3 IN 1 D 1 OR 2 WEEKS
  4. DICLOFENAC SODIUM [Concomitant]
  5. METHOTREXATE [Concomitant]
  6. ALENDRONATE SODIUM [Concomitant]
  7. ESOMEPRAZOLE [Concomitant]
  8. AMLODIPINE BESYLATE [Concomitant]

REACTIONS (9)
  - ANAEMIA [None]
  - BODY TEMPERATURE INCREASED [None]
  - GASTRIC ULCER [None]
  - HEADACHE [None]
  - HIATUS HERNIA [None]
  - LABORATORY TEST ABNORMAL [None]
  - MELAENA [None]
  - OESOPHAGEAL STENOSIS [None]
  - SINUSITIS [None]
